FAERS Safety Report 23784908 (Version 2)
Quarter: 2024Q2

REPORT INFORMATION
  Report Type: Report from Study
  Country: US (occurrence: US)
  Receive Date: 20240425
  Receipt Date: 20240509
  Transmission Date: 20240716
  Serious: Yes (Hospitalization)
  Sender: FDA-Public Use
  Company Number: US-TAKEDA-2024TUS039085

PATIENT
  Sex: Female

DRUGS (1)
  1. MARIBAVIR [Suspect]
     Active Substance: MARIBAVIR
     Indication: Heart transplant
     Dosage: 400 MILLIGRAM, BID
     Route: 048

REACTIONS (17)
  - White blood cell count decreased [Recovering/Resolving]
  - Asthenia [Unknown]
  - Urinary tract infection [Unknown]
  - Gait disturbance [Not Recovered/Not Resolved]
  - Constipation [Unknown]
  - Dysstasia [Not Recovered/Not Resolved]
  - Urine output decreased [Unknown]
  - Chromaturia [Unknown]
  - Irritability [Unknown]
  - Loss of personal independence in daily activities [Unknown]
  - Anger [Unknown]
  - Crying [Unknown]
  - Emotional disorder [Unknown]
  - Tremor [Unknown]
  - Fatigue [Unknown]
  - Decreased appetite [Unknown]
  - Product use in unapproved indication [Unknown]
